FAERS Safety Report 11213448 (Version 1)
Quarter: 2015Q2

REPORT INFORMATION
  Report Type: Spontaneous
  Country: US (occurrence: US)
  Receive Date: 20150623
  Receipt Date: 20150623
  Transmission Date: 20150821
  Serious: No
  Sender: FDA-Public Use
  Company Number: US-PFIZER INC-2015203963

PATIENT
  Age: 71 Year
  Sex: Female
  Weight: 97.51 kg

DRUGS (15)
  1. EVENING PRIMROSE OIL [Concomitant]
     Active Substance: EVENING PRIMROSE OIL
     Dosage: UNK
  2. ATORVASTATIN [Concomitant]
     Active Substance: ATORVASTATIN
     Dosage: 20 MG, UNK
  3. LOSARTAN POTASSIUM. [Concomitant]
     Active Substance: LOSARTAN POTASSIUM
     Dosage: 25 MG, UNK
  4. CALCIFEROL [Concomitant]
     Active Substance: ERGOCALCIFEROL
     Dosage: 0.25 ?G,THREE TIMES A WEEK
  5. BICILLIN [Concomitant]
     Active Substance: PENICILLIN G BENZATHINE
     Dosage: 5 MG, UNK
  6. REVATIO [Suspect]
     Active Substance: SILDENAFIL CITRATE
     Indication: PULMONARY HYPERTENSION
     Dosage: 20 MG, 3X/DAY (ONE THREE TIMES A DAY AT A BED TIME)
     Route: 048
     Dates: start: 201502
  7. CYMBALTA [Concomitant]
     Active Substance: DULOXETINE HYDROCHLORIDE
     Dosage: 50 MG, UNK
  8. FUROSEMIDE. [Concomitant]
     Active Substance: FUROSEMIDE
     Dosage: 20 MG, UNK
  9. BIOTIN [Concomitant]
     Active Substance: BIOTIN
     Dosage: 10000 MG, UNK
  10. BABY ASPIRIN [Concomitant]
     Active Substance: ASPIRIN
     Dosage: UNK
  11. VICTOZA [Concomitant]
     Active Substance: LIRAGLUTIDE
     Dosage: 1.8 IU, UNK
  12. OPSUMIT [Concomitant]
     Active Substance: MACITENTAN
     Indication: DYSPNOEA
     Dosage: 10 MG, UNK
  13. LEVOTHYROXINE SODIUM. [Concomitant]
     Active Substance: LEVOTHYROXINE SODIUM
     Dosage: 88 ?G, UNK
  14. VITAMIN B12 [Concomitant]
     Active Substance: CYANOCOBALAMIN
     Indication: SUPPLEMENTATION THERAPY
     Dosage: 1000 MG, UNK
  15. IRON [Concomitant]
     Active Substance: IRON
     Dosage: 65 MG, 3X/DAY

REACTIONS (2)
  - Dyspnoea [Recovering/Resolving]
  - Stress [Unknown]
